FAERS Safety Report 9331004 (Version 2)
Quarter: 2013Q3

REPORT INFORMATION
  Report Type: Spontaneous
  Country: US (occurrence: None)
  Receive Date: 20130531
  Receipt Date: 20130924
  Transmission Date: 20140515
  Serious: Yes (Death)
  Sender: FDA-Public Use
  Company Number: 1305-565

PATIENT
  Age: 63 Year
  Sex: Male
  Weight: 87.09 kg

DRUGS (12)
  1. VEGF TRAP-EYE (INJECTION) (VEGF TRAP) [Suspect]
     Indication: DIABETIC RETINAL OEDEMA
     Dosage: INTRAVITREAL
     Dates: start: 20121216
  2. DILTIAZEM [Concomitant]
  3. HYDRALAZINE (HYDRALAZINE) [Concomitant]
  4. FUROSEMIDE (FUROSEMIDE) [Concomitant]
  5. LISINOPRIL (LISINOPRIL) [Concomitant]
  6. ASPIRIN (ACETYLSALICYLIC ACID) [Concomitant]
  7. LIPITOR (ATORVASTATIN CALCIUM) [Concomitant]
  8. NOVOLIN (HUMAN MIXTARD) [Concomitant]
  9. IRON (IRON) [Concomitant]
  10. VITAMIN D (ERGOCALCIFEROL) [Concomitant]
  11. OMEGA 3 FISH OIL (FISH OIL) [Concomitant]
  12. CLONIDINE TRANSDERMAL PATCH (CLONIDINE HYDROCHLORIDE) [Concomitant]

REACTIONS (1)
  - Cerebrovascular accident [None]
